FAERS Safety Report 7039336-7 (Version None)
Quarter: 2010Q4

REPORT INFORMATION
  Report Type: 
  Country: None (occurrence: None)
  Receive Date: 20101012
  Receipt Date: 20101001
  Transmission Date: 20110411
  Serious: Yes (Hospitalization)
  Sender: FDA-Public Use
  Company Number: DE-JNJFOC-20100305340

PATIENT
  Age: 74 Year
  Sex: Female
  Weight: 80 kg

DRUGS (5)
  1. REMICADE [Suspect]
     Indication: COLITIS ULCERATIVE
     Route: 042
  2. LEVOTHYROXINE SODIUM [Concomitant]
     Dosage: DOSAGE ^75^
     Route: 048
  3. PANTOPRAZOLE SODIUM [Concomitant]
     Indication: GASTROOESOPHAGEAL REFLUX DISEASE
     Route: 048
  4. CALCIUM AND D3 [Concomitant]
     Dosage: DOSAGE ^500^
  5. DIOVAN [Concomitant]
     Route: 048

REACTIONS (1)
  - COLITIS ULCERATIVE [None]
